FAERS Safety Report 5498567-8 (Version None)
Quarter: 2007Q4

REPORT INFORMATION
  Report Type: 
  Country: None (occurrence: None)
  Receive Date: 20071024
  Receipt Date: 20071024
  Transmission Date: 20080405
  Serious: Yes (Hospitalization)
  Sender: FDA-Public Use
  Company Number: None

PATIENT
  Sex: Male
  Weight: 68.0396 kg

DRUGS (2)
  1. LYRICA [Suspect]
     Indication: PAIN
     Dosage: 1 TAB AM PO
     Route: 048
  2. LYRICA [Suspect]
     Indication: PAIN
     Dosage: 1 TAB HS PO
     Route: 048

REACTIONS (1)
  - HALLUCINATION, VISUAL [None]
